FAERS Safety Report 6337175-3 (Version None)
Quarter: 2009Q3

REPORT INFORMATION
  Report Type: 
  Country: None (occurrence: None)
  Receive Date: 20090831
  Receipt Date: 20090818
  Transmission Date: 20100115
  Serious: Yes (Hospitalization)
  Sender: FDA-Public Use
  Company Number: ADR16822009

PATIENT
  Sex: Female

DRUGS (6)
  1. RAMIPRIL [Suspect]
     Dosage: 1.5 MG/ DAY THEN INCREASED TO 2.5 MG/DAY
     Dates: start: 20081101
  2. ASPIRIN [Concomitant]
  3. CITALOPRAM (110 MG) [Concomitant]
  4. DIAZEPAM [Concomitant]
  5. HYDROXYCHLOROQUINE SULFATE [Concomitant]
  6. NEXIUM [Concomitant]

REACTIONS (1)
  - GASTROENTERITIS [None]
